FAERS Safety Report 5592612-7 (Version None)
Quarter: 2008Q1

REPORT INFORMATION
  Report Type: 
  Country: None (occurrence: None)
  Receive Date: 20080114
  Receipt Date: 20080102
  Transmission Date: 20080703
  Serious: Yes (Other)
  Sender: FDA-Public Use
  Company Number: 230738J07USA

PATIENT
  Age: 49 Year
  Sex: Female
  Weight: 130.1823 kg

DRUGS (10)
  1. REBIF [Suspect]
     Indication: MULTIPLE SCLEROSIS
     Dosage: 44 MCG, 3 IN 1 WEEKS, SUBCUTANEOUS, 44 MCG, 3 IN 1 WEEKS, SUBCUTANEOUS
     Route: 058
     Dates: start: 20020801, end: 20041201
  2. REBIF [Suspect]
     Indication: MULTIPLE SCLEROSIS
     Dosage: 44 MCG, 3 IN 1 WEEKS, SUBCUTANEOUS, 44 MCG, 3 IN 1 WEEKS, SUBCUTANEOUS
     Route: 058
     Dates: start: 20070711
  3. METFORMIN                      (METFORMIN /00082701/) [Concomitant]
  4. ACTOS [Concomitant]
  5. CYMBALTA [Concomitant]
  6. TOPAMAX [Concomitant]
  7. NEURONTIN [Concomitant]
  8. TRICOR [Concomitant]
  9. JANUVIA                    (ALL OTHER THERAPEUTIC PRODUCTS) [Concomitant]
  10. PROTONIX [Concomitant]

REACTIONS (4)
  - BLOOD GLUCOSE INCREASED [None]
  - EPINEPHRINE INCREASED [None]
  - LABILE HYPERTENSION [None]
  - NOREPINEPHRINE INCREASED [None]
